FAERS Safety Report 6444028-9 (Version None)
Quarter: 2009Q4

REPORT INFORMATION
  Report Type: 
  Country: None (occurrence: None)
  Receive Date: 20091116
  Receipt Date: 20091116
  Transmission Date: 20100525
  Serious: No
  Sender: FDA-Public Use
  Company Number: None

PATIENT
  Sex: Female
  Weight: 62.1428 kg

DRUGS (2)
  1. METOPROLOL TARTRATE [Suspect]
     Indication: HYPERTENSIVE HEART DISEASE
     Dosage: 1 TAB DAILY PO
     Route: 048
     Dates: start: 20090917, end: 20091009
  2. LOPRESSOR [Suspect]

REACTIONS (4)
  - DIZZINESS [None]
  - GASTROINTESTINAL PAIN [None]
  - NAUSEA [None]
  - PRODUCT SUBSTITUTION ISSUE [None]
